FAERS Safety Report 21920306 (Version 3)
Quarter: 2023Q2

REPORT INFORMATION
  Report Type: Spontaneous
  Country: JP (occurrence: JP)
  Receive Date: 20230127
  Receipt Date: 20230406
  Transmission Date: 20230721
  Serious: Yes (Other)
  Sender: FDA-Public Use
  Company Number: JP-PFIZER INC-PV202300016565

PATIENT
  Age: 75 Year
  Sex: Male
  Weight: 50.5 kg

DRUGS (3)
  1. METRONIDAZOLE [Suspect]
     Active Substance: METRONIDAZOLE
     Indication: Abdominal abscess
     Dosage: 500 MG, 3X/DAY
     Route: 041
     Dates: start: 20221210, end: 20221213
  2. OMEPRAL [OMEPRAZOLE SODIUM] [Concomitant]
     Indication: Gastrooesophageal reflux disease
     Dosage: 20 MG, 2X/DAY
     Route: 042
     Dates: start: 20221209, end: 20221212
  3. CEFTAZIDIME [Concomitant]
     Active Substance: CEFTAZIDIME
     Indication: Abdominal abscess
     Dosage: 100 MG, 2X/DAY
     Route: 041
     Dates: start: 20221208, end: 20221214

REACTIONS (3)
  - Epilepsy [Recovered/Resolved]
  - Altered state of consciousness [Recovered/Resolved]
  - Tremor [Recovered/Resolved]

NARRATIVE: CASE EVENT DATE: 20221213
